FAERS Safety Report 9813759 (Version 1)
Quarter: 2014Q1

REPORT INFORMATION
  Report Type: Spontaneous
  Country: US (occurrence: None)
  Receive Date: 20140109
  Receipt Date: 20140109
  Transmission Date: 20141002
  Serious: No
  Sender: FDA-Public Use
  Company Number: None

PATIENT
  Age: 55 Year
  Sex: Female
  Weight: 110.5 kg

DRUGS (1)
  1. DEFINITY [Suspect]
     Indication: ECHOCARDIOGRAM
     Dosage: IV PUSH
     Route: 042
     Dates: start: 20131217

REACTIONS (4)
  - Pain [None]
  - Heart rate increased [None]
  - Dyspnoea [None]
  - Muscle spasms [None]
